FAERS Safety Report 14250685 (Version 2)
Quarter: 2018Q1

REPORT INFORMATION
  Report Type: Spontaneous
  Country: JP (occurrence: JP)
  Receive Date: 20171205
  Receipt Date: 20180206
  Transmission Date: 20180508
  Serious: Yes (Other)
  Sender: FDA-Public Use
  Company Number: JP-SUN PHARMACEUTICAL INDUSTRIES LTD-2017R1-156228

PATIENT
  Sex: Female
  Weight: 2.13 kg

DRUGS (4)
  1. DESMOPRESSIN [Suspect]
     Active Substance: DESMOPRESSIN
     Indication: PROMOTION OF PERIPHERAL CIRCULATION
     Dosage: 20 UG
     Route: 064
  2. LEVOTHYROXINE. [Concomitant]
     Active Substance: LEVOTHYROXINE
     Indication: HYPOTHYROIDISM
     Dosage: 150 ?G, DAILY
     Route: 064
  3. HYDROCORTISONE. [Suspect]
     Active Substance: HYDROCORTISONE
     Indication: LUNG DISORDER
     Dosage: DAILY, 20-30 MG
     Route: 064
  4. VASOPRESSIN. [Suspect]
     Active Substance: VASOPRESSIN
     Indication: PROMOTION OF PERIPHERAL CIRCULATION
     Dosage: 0.01-0.02 U/H
     Route: 064

REACTIONS (2)
  - Foetal exposure during pregnancy [Unknown]
  - Premature baby [Unknown]
